FAERS Safety Report 8797566 (Version 3)
Quarter: 2012Q4

REPORT INFORMATION
  Report Type: 
  Country: DE (occurrence: DE)
  Receive Date: 20120920
  Receipt Date: 20121023
  Transmission Date: 20130627
  Serious: Yes (Hospitalization)
  Sender: FDA-Public Use
  Company Number: PHHY2012DE080780

PATIENT
  Sex: Male
  Weight: 68 kg

DRUGS (12)
  1. EXJADE [Suspect]
     Indication: THALASSAEMIA BETA
     Dosage: 2250 mg, per day
     Route: 048
     Dates: start: 2007
  2. PEGYLATED INTERFERON NOS [Concomitant]
     Indication: HEPATITIS C
     Dosage: 180 ug, UNK
     Dates: start: 20120427, end: 20120911
  3. TELAPREVIR [Concomitant]
     Indication: HEPATITIS C
     Dosage: UNK UKN, UNK
     Dates: start: 20120427, end: 20120911
  4. COPEGUS [Concomitant]
     Indication: HEPATITIS C
     Dosage: 200 mg, UNK
     Dates: start: 20120427, end: 20120911
  5. ASS [Concomitant]
     Indication: COAGULOPATHY
     Dosage: 100 mg, daily
  6. L-THYROXINE [Concomitant]
     Indication: HYPOTHYROIDISM
     Dosage: 150 U, daily
  7. CALCIUM VERLA [Concomitant]
     Indication: OSTEOPOROSIS
     Dosage: daily
  8. MAGNESIUM VERLA [Concomitant]
     Indication: OSTEOPOROSIS
     Dosage: daily
  9. NEBIDO [Concomitant]
     Indication: BLOOD TESTOSTERONE ABNORMAL
     Dosage: daily
  10. VITAMIN D [Concomitant]
     Indication: OSTEOPOROSIS
  11. ACTRAPID [Concomitant]
     Indication: DIABETES MELLITUS
  12. PROTAPHAN [Concomitant]
     Indication: DIABETES MELLITUS

REACTIONS (1)
  - Psychotic disorder [Unknown]
